FAERS Safety Report 16827263 (Version 1)
Quarter: 2019Q3

REPORT INFORMATION
  Report Type: Report from Study
  Country: None (occurrence: US)
  Receive Date: 20190919
  Receipt Date: 20190919
  Transmission Date: 20191005
  Serious: Yes (Other)
  Sender: FDA-Public Use
  Company Number: US-ABBVIE-19K-163-2921951-00

PATIENT
  Age: 54 Year
  Sex: Male

DRUGS (1)
  1. MAVYRET [Suspect]
     Active Substance: GLECAPREVIR\PIBRENTASVIR
     Indication: PRODUCT USED FOR UNKNOWN INDICATION
     Dosage: 3 TABLETS OF THE 100 MG MAVYRET .
     Route: 048
     Dates: start: 20190911

REACTIONS (3)
  - Myocardial infarction [Unknown]
  - Sluggishness [Unknown]
  - Fatigue [Unknown]

NARRATIVE: CASE EVENT DATE: 20190911
